FAERS Safety Report 23744616 (Version 3)
Quarter: 2024Q2

REPORT INFORMATION
  Report Type: Spontaneous
  Country: FR (occurrence: FR)
  Receive Date: 20240415
  Receipt Date: 20240617
  Transmission Date: 20240715
  Serious: Yes (Other)
  Sender: FDA-Public Use
  Company Number: FR-ALNYLAM PHARMACEUTICALS, INC.-ALN-2024-002039

PATIENT

DRUGS (14)
  1. ONPATTRO [Suspect]
     Active Substance: PATISIRAN SODIUM
     Indication: Hereditary neuropathic amyloidosis
     Dosage: UNK
     Route: 065
  2. ENANTONE LP [Concomitant]
     Active Substance: LEUPROLIDE ACETATE
     Indication: Product used for unknown indication
     Dosage: 11.25 MILLIGRAM, MONTHLY
     Route: 065
  3. ENANTONE LP [Concomitant]
     Active Substance: LEUPROLIDE ACETATE
     Dosage: 11.25 MILLIGRAM, MONTHLY
     Route: 065
     Dates: start: 202404
  4. FUROSEMIDE [Concomitant]
     Active Substance: FUROSEMIDE
     Indication: Product used for unknown indication
     Dosage: 20 MILLIGRAM, QD
     Route: 065
  5. REPAGLINIDE [Concomitant]
     Active Substance: REPAGLINIDE
     Indication: Product used for unknown indication
     Dosage: 0.5 MILLIGRAM, TID
     Route: 065
  6. GABAPENTIN [Concomitant]
     Active Substance: GABAPENTIN
     Indication: Product used for unknown indication
     Dosage: 1/2 DOSAGE FORM, TID
     Route: 065
  7. ASPIRIN [Concomitant]
     Active Substance: ASPIRIN
     Indication: Product used for unknown indication
     Dosage: 75 MILLIGRAM, QD (NOON)
     Route: 065
  8. VITAMIN A [Concomitant]
     Active Substance: VITAMIN A
     Indication: Product used for unknown indication
     Dosage: 2500 INTERNATIONAL UNIT, QD
     Route: 065
  9. ACETAMINOPHEN [Concomitant]
     Active Substance: ACETAMINOPHEN
     Indication: Product used for unknown indication
     Dosage: 1 GRAM, TID
     Route: 065
  10. CHOLECALCIFEROL [Concomitant]
     Active Substance: CHOLECALCIFEROL
     Indication: Product used for unknown indication
     Dosage: 50000 INTERNATIONAL UNIT, MONTHLY
     Route: 065
  11. FLECTOR [Concomitant]
     Active Substance: DICLOFENAC EPOLAMINE
     Indication: Product used for unknown indication
     Dosage: 1 DOSAGE FORM, QID
     Route: 065
  12. PRAZEPAM [Concomitant]
     Active Substance: PRAZEPAM
     Indication: Product used for unknown indication
     Dosage: 10 GTT DROPS, QD ( IN THE EVENING)
     Route: 065
  13. ERYTHROPOIETIN [Concomitant]
     Active Substance: ERYTHROPOIETIN
     Indication: Product used for unknown indication
     Dosage: 100000 INTERNATIONAL UNIT, WEEKLY
     Route: 065
  14. FOLIC ACID [Concomitant]
     Active Substance: FOLIC ACID
     Indication: Product used for unknown indication
     Dosage: 5 MILLIGRAM, QD
     Route: 065

REACTIONS (1)
  - Renal impairment [Not Recovered/Not Resolved]
